FAERS Safety Report 7637529-9 (Version None)
Quarter: 2011Q3

REPORT INFORMATION
  Report Type: 
  Country: None (occurrence: None)
  Receive Date: 20110726
  Receipt Date: 20110718
  Transmission Date: 20111222
  Serious: Yes (Other)
  Sender: FDA-Public Use
  Company Number: US-ASTRAZENECA-2011SE19010

PATIENT
  Age: 48 Year
  Sex: Male

DRUGS (3)
  1. METOPROLOL TARTRATE [Suspect]
     Route: 065
  2. TOPROL-XL [Suspect]
     Dosage: ONE TABLET IN MORNING AND ONE IN EVENING
     Route: 048
  3. CLONIDINE [Concomitant]

REACTIONS (6)
  - DRUG DOSE OMISSION [None]
  - CEREBROVASCULAR INSUFFICIENCY [None]
  - DRUG INEFFECTIVE [None]
  - LABILE BLOOD PRESSURE [None]
  - VOMITING [None]
  - HYPERTENSION [None]
